FAERS Safety Report 23947961 (Version 2)
Quarter: 2024Q2

REPORT INFORMATION
  Report Type: Spontaneous
  Country: JP (occurrence: JP)
  Receive Date: 20240606
  Receipt Date: 20240613
  Transmission Date: 20240716
  Serious: Yes (Life-Threatening, Hospitalization)
  Sender: FDA-Public Use
  Company Number: JP-JNJFOC-20240613698

PATIENT
  Sex: Male

DRUGS (22)
  1. RISPERDAL [Suspect]
     Active Substance: RISPERIDONE
     Indication: Schizophrenia
     Dosage: P.R.N, DOSE UNKNOWN
     Route: 048
  2. RISPERDAL [Suspect]
     Active Substance: RISPERIDONE
     Dosage: P.R.N
     Route: 048
     Dates: end: 202310
  3. RISPERDAL [Suspect]
     Active Substance: RISPERIDONE
     Indication: Schizophrenia
     Dosage: DOSE UNKNOWN
     Route: 048
     Dates: start: 1996
  4. RISPERDAL [Suspect]
     Active Substance: RISPERIDONE
     Route: 048
  5. RISPERDAL [Suspect]
     Active Substance: RISPERIDONE
     Route: 048
  6. RISPERDAL [Suspect]
     Active Substance: RISPERIDONE
     Dosage: IN THE MORNING AND EVENING
     Route: 048
     Dates: start: 2023, end: 202310
  7. BLONANSERIN [Concomitant]
     Active Substance: BLONANSERIN
     Dosage: DOSE UNKNOWN
     Route: 048
     Dates: start: 2017
  8. BLONANSERIN [Concomitant]
     Active Substance: BLONANSERIN
     Dosage: 4MG AND 8MG
     Route: 048
  9. VALPROATE SODIUM [Concomitant]
     Active Substance: VALPROATE SODIUM
     Indication: Bipolar disorder
     Route: 048
  10. CHLORPROMAZINE [Concomitant]
     Active Substance: CHLORPROMAZINE
     Route: 048
  11. SERTRALINE HYDROCHLORIDE [Concomitant]
     Active Substance: SERTRALINE HYDROCHLORIDE
     Dosage: DOSE UNKNOWN
     Route: 048
  12. SERTRALINE HYDROCHLORIDE [Concomitant]
     Active Substance: SERTRALINE HYDROCHLORIDE
     Route: 048
  13. AKINETON [Concomitant]
     Active Substance: BIPERIDEN HYDROCHLORIDE
     Route: 048
  14. AKINETON [Concomitant]
     Active Substance: BIPERIDEN HYDROCHLORIDE
     Route: 048
  15. AKINETON [Concomitant]
     Active Substance: BIPERIDEN HYDROCHLORIDE
     Route: 048
  16. HALOPERIDOL [Concomitant]
     Active Substance: HALOPERIDOL
     Dosage: DOSE UNKNOWN
     Route: 048
  17. ABILIFY [Concomitant]
     Active Substance: ARIPIPRAZOLE
     Dosage: DOSE UNKNOWN
     Route: 065
  18. PAXIL [Concomitant]
     Active Substance: PAROXETINE HYDROCHLORIDE
     Route: 048
  19. ETIZOLAM [Concomitant]
     Active Substance: ETIZOLAM
     Indication: Anxiety
     Dosage: DOSE UNKNOWN
     Route: 048
  20. DIAZEPAM [Concomitant]
     Active Substance: DIAZEPAM
     Route: 048
  21. LAMICTAL [Concomitant]
     Active Substance: LAMOTRIGINE
     Dosage: DOSE UNKNOWN
     Route: 048
  22. PROCHLORPERAZINE [Concomitant]
     Active Substance: PROCHLORPERAZINE
     Dosage: DOSE UNKNOWN
     Route: 048

REACTIONS (6)
  - Neuroleptic malignant syndrome [Recovered/Resolved]
  - Cardio-respiratory arrest [Recovered/Resolved]
  - Seizure [Recovered/Resolved]
  - Blood creatine phosphokinase increased [Recovered/Resolved]
  - Dizziness [Recovered/Resolved]
  - Off label use [Recovered/Resolved]

NARRATIVE: CASE EVENT DATE: 20230901
